FAERS Safety Report 17569863 (Version 1)
Quarter: 2020Q1

REPORT INFORMATION
  Report Type: Spontaneous
  Country: ES (occurrence: ES)
  Receive Date: 20200323
  Receipt Date: 20200323
  Transmission Date: 20200409
  Serious: Yes (Other)
  Sender: FDA-Public Use
  Company Number: ES-TEVA-2020-ES-1206667

PATIENT
  Age: 68 Year
  Sex: Male

DRUGS (1)
  1. AZITROMICINA (7019A) [Suspect]
     Active Substance: AZITHROMYCIN
     Indication: PNEUMONIA LEGIONELLA
     Route: 048
     Dates: start: 20200130, end: 20200131

REACTIONS (1)
  - Hepatitis toxic [Recovered/Resolved]

NARRATIVE: CASE EVENT DATE: 20200131
